FAERS Safety Report 23331610 (Version 1)
Quarter: 2023Q4

REPORT INFORMATION
  Report Type: Spontaneous
  Country: JP (occurrence: JP)
  Receive Date: 20231222
  Receipt Date: 20231222
  Transmission Date: 20240110
  Serious: Yes (Death, Life-Threatening, Other)
  Sender: FDA-Public Use
  Company Number: JP-TAKEDA-2023TJP014645

PATIENT
  Age: 65 Year
  Sex: Male
  Weight: 56 kg

DRUGS (8)
  1. VECTIBIX [Suspect]
     Active Substance: PANITUMUMAB
     Indication: Colon cancer
     Dosage: 336 MILLIGRAM, Q2WK
     Route: 042
     Dates: start: 20230412
  2. VECTIBIX [Suspect]
     Active Substance: PANITUMUMAB
     Dosage: 336 MILLIGRAM, Q2WK
     Route: 042
     Dates: start: 20230719, end: 20230906
  3. OXALIPLATIN [Suspect]
     Active Substance: OXALIPLATIN
     Indication: Colon cancer
     Dosage: 85 MILLIGRAM/SQ. METER, Q2WEEKS
     Route: 041
     Dates: start: 20230412, end: 20231018
  4. FLUOROURACIL [Suspect]
     Active Substance: FLUOROURACIL
     Indication: Colon cancer
     Dosage: 2650 MILLIGRAM/SQ. METER, Q2WEEKS
     Route: 041
     Dates: start: 20230412, end: 20231018
  5. LEVOLEUCOVORIN CALCIUM [Suspect]
     Active Substance: LEVOLEUCOVORIN CALCIUM
     Indication: Colon cancer
     Dosage: 200 MILLIGRAM/SQ. METER, Q2WEEKS
     Route: 041
     Dates: start: 20230412, end: 20231018
  6. DEXAMETHASONE SODIUM PHOSPHATE [Concomitant]
     Active Substance: DEXAMETHASONE PHOSPHATE\DEXAMETHASONE SODIUM PHOSPHATE
     Indication: Prophylaxis of nausea and vomiting
     Dosage: 9.9 MILLIGRAM, Q2WEEKS
     Route: 041
     Dates: start: 20230412, end: 20231018
  7. DECADRON [Concomitant]
     Active Substance: DEXAMETHASONE
     Indication: Prophylaxis of nausea and vomiting
     Dosage: 8 MILLIGRAM, Q2WK
     Route: 048
     Dates: start: 20230413, end: 20231020
  8. GRANISETRON [Concomitant]
     Active Substance: GRANISETRON
     Indication: Prophylaxis of nausea and vomiting
     Dosage: 1 MILLIGRAM, Q2WK
     Route: 042
     Dates: start: 20230412, end: 20231018

REACTIONS (8)
  - Respiratory failure [Fatal]
  - Interstitial lung disease [Fatal]
  - Disseminated intravascular coagulation [Unknown]
  - Neuropathy peripheral [Not Recovered/Not Resolved]
  - Dermatitis acneiform [Recovering/Resolving]
  - Dermatitis acneiform [Unknown]
  - Hypomagnesaemia [Unknown]
  - Anaemia [Not Recovered/Not Resolved]

NARRATIVE: CASE EVENT DATE: 20230412
